FAERS Safety Report 25554878 (Version 2)
Quarter: 2025Q3

REPORT INFORMATION
  Report Type: Report from Study
  Country: US (occurrence: US)
  Receive Date: 20250715
  Receipt Date: 20250820
  Transmission Date: 20251020
  Serious: Yes (Hospitalization)
  Sender: TAKEDA
  Company Number: US-TAKEDA-2022TUS071063

PATIENT
  Age: 64 Year
  Sex: Female
  Weight: 83 kg

DRUGS (19)
  1. HUMAN IMMUNOGLOBULIN G [Suspect]
     Active Substance: HUMAN IMMUNOGLOBULIN G
     Indication: Immunodeficiency common variable
     Dosage: 10 GRAM, 1/WEEK
  2. HUMAN IMMUNOGLOBULIN G [Suspect]
     Active Substance: HUMAN IMMUNOGLOBULIN G
     Dosage: 10 GRAM, 1/WEEK
     Dates: start: 20221010
  3. HUMAN IMMUNOGLOBULIN G [Suspect]
     Active Substance: HUMAN IMMUNOGLOBULIN G
     Dosage: 8 GRAM, 1/WEEK
  4. HUMAN IMMUNOGLOBULIN G [Suspect]
     Active Substance: HUMAN IMMUNOGLOBULIN G
     Dosage: 10 GRAM, 1/WEEK
  5. BENADRYL [Suspect]
     Active Substance: DIPHENHYDRAMINE HYDROCHLORIDE
     Indication: Product used for unknown indication
  6. DIPHENHYDRAMINE HYDROCHLORIDE [Concomitant]
     Active Substance: DIPHENHYDRAMINE HYDROCHLORIDE
  7. EPINEPHRINE [Concomitant]
     Active Substance: EPINEPHRINE
  8. AZITHROMYCIN [Concomitant]
     Active Substance: AZITHROMYCIN
  9. ESTRADIOL [Concomitant]
     Active Substance: ESTRADIOL
     Dosage: UNK UNK, 1/WEEK
  10. VALTREX [Concomitant]
     Active Substance: VALACYCLOVIR HYDROCHLORIDE
  11. ACETAMINOPHEN [Concomitant]
     Active Substance: ACETAMINOPHEN
  12. ARMOUR THYROID [Concomitant]
     Active Substance: THYROID, PORCINE
  13. FLUCONAZOLE [Concomitant]
     Active Substance: FLUCONAZOLE
  14. PROGESTERONE [Concomitant]
     Active Substance: PROGESTERONE
  15. Lmx [Concomitant]
  16. NYSTATIN [Concomitant]
     Active Substance: NYSTATIN
  17. TRIAMCINOLONE [Concomitant]
     Active Substance: TRIAMCINOLONE
  18. Methyl Guard [Concomitant]
  19. NYSTATIN\TRIAMCINOLONE [Concomitant]
     Active Substance: NYSTATIN\TRIAMCINOLONE

REACTIONS (25)
  - Bacterial infection [Unknown]
  - Multiple allergies [Unknown]
  - Respiratory tract congestion [Unknown]
  - Ear infection [Unknown]
  - Seasonal allergy [Unknown]
  - Infection [Unknown]
  - Application site discolouration [Unknown]
  - Vitreous floaters [Unknown]
  - Nasopharyngitis [Unknown]
  - Insurance issue [Unknown]
  - Dermatitis contact [Unknown]
  - Device use issue [Unknown]
  - Product use issue [Unknown]
  - Oral herpes [Unknown]
  - Bartholin^s cyst [Unknown]
  - Sinusitis [Unknown]
  - Infusion site haemorrhage [Unknown]
  - Herpes simplex [Unknown]
  - Influenza [Unknown]
  - Feeling abnormal [Unknown]
  - Somnolence [Unknown]
  - Infusion site bruising [Unknown]
  - Influenza like illness [Unknown]
  - Hypersensitivity [Unknown]
  - Headache [Recovered/Resolved]

NARRATIVE: CASE EVENT DATE: 20231201
